FAERS Safety Report 5075438-2 (Version None)
Quarter: 2006Q3

REPORT INFORMATION
  Report Type: 
  Country: None (occurrence: None)
  Receive Date: 20060809
  Receipt Date: 20060719
  Transmission Date: 20061208
  Serious: Yes (Other)
  Sender: FDA-Public Use
  Company Number: PHBS2006JP10864

PATIENT
  Age: 60 Year
  Sex: Female

DRUGS (7)
  1. CYCLOSPORINE [Suspect]
     Indication: CORNEAL PERFORATION
     Dosage: UNK, UNK
     Dates: start: 20021112, end: 20031001
  2. FLUOROMETHOLONE [Concomitant]
     Indication: CORNEAL TRANSPLANT
     Dosage: UNK, UNK
     Dates: start: 20030201, end: 20030401
  3. BETAMETHASONE SODIUM PHOSPHATE [Concomitant]
     Indication: CORNEAL TRANSPLANT
     Dates: start: 20030401
  4. LEVOFLOXACIN [Concomitant]
     Dates: start: 20030401
  5. BROMFENAC SODIUM [Concomitant]
     Dates: start: 20030401, end: 20030601
  6. COLISTIN [Concomitant]
     Dates: start: 20031001
  7. STEROIDS NOS [Concomitant]
     Indication: CORNEAL TRANSPLANT
     Route: 061

REACTIONS (5)
  - BLEPHARITIS [None]
  - CORNEAL PERFORATION [None]
  - CORYNEBACTERIUM INFECTION [None]
  - EYE DISCHARGE [None]
  - EYELID INFECTION [None]
